FAERS Safety Report 6550831-7 (Version None)
Quarter: 2010Q1

REPORT INFORMATION
  Report Type: 
  Country: None (occurrence: None)
  Receive Date: 20100125
  Receipt Date: 20100114
  Transmission Date: 20100710
  Serious: Yes (Hospitalization, Other)
  Sender: FDA-Public Use
  Company Number: US-ELI_LILLY_AND_COMPANY-US201001002923

PATIENT
  Sex: Female
  Weight: 89.342 kg

DRUGS (7)
  1. BYETTA [Suspect]
     Indication: TYPE 2 DIABETES MELLITUS
     Dosage: 5 UG, 2/D
     Route: 058
     Dates: start: 20060101, end: 20060101
  2. BYETTA [Suspect]
     Dosage: 10 UG, 2/D
     Route: 058
     Dates: start: 20060101
  3. AMARYL [Concomitant]
     Indication: TYPE 2 DIABETES MELLITUS
     Dosage: 8 MG, DAILY (1/D)
  4. HYDROCHLOROTHIAZIDE [Concomitant]
     Indication: BLOOD PRESSURE
  5. BENAZEPRIL HYDROCHLORIDE [Concomitant]
     Indication: BLOOD PRESSURE
  6. CLONAZEPAM [Concomitant]
     Dosage: 1 MG, 2/D
     Dates: start: 20000101
  7. AMBIEN [Concomitant]
     Dosage: 10 MG, EACH EVENING
     Dates: start: 20090101

REACTIONS (41)
  - ABDOMINAL PAIN UPPER [None]
  - ABNORMAL FAECES [None]
  - ANTIBODY TEST ABNORMAL [None]
  - ARTHRALGIA [None]
  - ASTHENIA [None]
  - ATRIAL FIBRILLATION [None]
  - BACK PAIN [None]
  - CARDIAC FAILURE CONGESTIVE [None]
  - CARDIAC FLUTTER [None]
  - COELIAC DISEASE [None]
  - CONSTIPATION [None]
  - CONTUSION [None]
  - DECREASED APPETITE [None]
  - DEHYDRATION [None]
  - DEPRESSION [None]
  - DIARRHOEA [None]
  - DIVERTICULITIS [None]
  - FACE INJURY [None]
  - FAECES DISCOLOURED [None]
  - FALL [None]
  - GAIT DISTURBANCE [None]
  - GASTROOESOPHAGEAL REFLUX DISEASE [None]
  - HAEMATOCHEZIA [None]
  - HAEMORRHOIDS [None]
  - HEART RATE INCREASED [None]
  - HYPERSOMNIA [None]
  - INTERNATIONAL NORMALISED RATIO DECREASED [None]
  - INTERVERTEBRAL DISC DISORDER [None]
  - JOINT SWELLING [None]
  - MOBILITY DECREASED [None]
  - MUSCULOSKELETAL STIFFNESS [None]
  - NAUSEA [None]
  - NECK INJURY [None]
  - RENAL FAILURE [None]
  - SPINAL DEFORMITY [None]
  - SPINAL OSTEOARTHRITIS [None]
  - TEARFULNESS [None]
  - UMBILICAL HERNIA [None]
  - VIRAL INFECTION [None]
  - VOMITING [None]
  - WEIGHT DECREASED [None]
